FAERS Safety Report 25262948 (Version 1)
Quarter: 2025Q2

REPORT INFORMATION
  Report Type: Report from Study
  Country: GB (occurrence: GB)
  Receive Date: 20250502
  Receipt Date: 20250502
  Transmission Date: 20250716
  Serious: Yes (Death, Other)
  Sender: IPSEN
  Company Number: GB-IPSEN Group, Research and Development-2025-10207

PATIENT
  Sex: Female

DRUGS (1)
  1. LANREOTIDE ACETATE [Suspect]
     Active Substance: LANREOTIDE ACETATE
     Indication: Neuroendocrine tumour
     Dosage: DEEP SUBCUTANEOUS
     Route: 058

REACTIONS (1)
  - Death [Fatal]
